FAERS Safety Report 17965109 (Version 4)
Quarter: 2021Q1

REPORT INFORMATION
  Report Type: Report from Study
  Country: None (occurrence: US)
  Receive Date: 20200630
  Receipt Date: 20210112
  Transmission Date: 20210419
  Serious: Yes (Other)
  Sender: FDA-Public Use
  Company Number: US-ABBVIE-20K-163-3460230-00

PATIENT
  Age: 61 Year
  Sex: Female
  Weight: 50.85 kg

DRUGS (15)
  1. GAZYVA [Suspect]
     Active Substance: OBINUTUZUMAB
     Indication: PRODUCT USED FOR UNKNOWN INDICATION
     Route: 065
  2. AMBIEN [Concomitant]
     Active Substance: ZOLPIDEM TARTRATE
     Indication: SLEEP DISORDER
  3. VENCLEXTA [Suspect]
     Active Substance: VENETOCLAX
     Indication: CHRONIC LYMPHOCYTIC LEUKAEMIA
     Route: 048
     Dates: start: 20161209
  4. VENCLEXTA [Suspect]
     Active Substance: VENETOCLAX
     Dosage: 2 PILLS
     Route: 048
     Dates: start: 20200918, end: 20200920
  5. LEVAQUIN [Concomitant]
     Active Substance: LEVOFLOXACIN
     Indication: INFECTION PROPHYLAXIS
  6. VENCLEXTA [Suspect]
     Active Substance: VENETOCLAX
     Route: 048
     Dates: start: 20201118
  7. STRATTERA [Concomitant]
     Active Substance: ATOMOXETINE HYDROCHLORIDE
     Indication: ATTENTION DEFICIT HYPERACTIVITY DISORDER
  8. REMERON [Concomitant]
     Active Substance: MIRTAZAPINE
     Indication: DEPRESSION
  9. IV GLOBULIN S [Concomitant]
     Indication: INFECTION PROPHYLAXIS
  10. FYBROID [Concomitant]
     Indication: THYROID DISORDER
  11. VENCLEXTA [Suspect]
     Active Substance: VENETOCLAX
     Dosage: DOSE DECREASED
     Route: 048
     Dates: start: 20200506, end: 20200521
  12. STRATTERA [Concomitant]
     Active Substance: ATOMOXETINE HYDROCHLORIDE
     Indication: ANXIETY
  13. NORCO [Concomitant]
     Active Substance: ACETAMINOPHEN\HYDROCODONE BITARTRATE
     Indication: PAIN
  14. LEVAQUIN [Concomitant]
     Active Substance: LEVOFLOXACIN
     Indication: INFECTION PROPHYLAXIS
  15. VENCLEXTA [Suspect]
     Active Substance: VENETOCLAX
     Dosage: 1 PILLS
     Route: 048
     Dates: start: 2020, end: 2020

REACTIONS (40)
  - Deafness [Not Recovered/Not Resolved]
  - Swelling [Not Recovered/Not Resolved]
  - Decreased appetite [Recovered/Resolved]
  - Swelling face [Recovering/Resolving]
  - Tremor [Recovered/Resolved]
  - Laboratory test abnormal [Not Recovered/Not Resolved]
  - Tooth infection [Recovered/Resolved]
  - Tonsillar exudate [Recovered/Resolved]
  - Tooth resorption [Unknown]
  - Lymphocyte count decreased [Unknown]
  - Hypothyroidism [Unknown]
  - Vomiting [Recovered/Resolved]
  - Feeling cold [Unknown]
  - Eructation [Recovered/Resolved]
  - Malaise [Not Recovered/Not Resolved]
  - White blood cell count decreased [Recovering/Resolving]
  - Malaise [Recovered/Resolved]
  - Hypophagia [Not Recovered/Not Resolved]
  - Back pain [Recovered/Resolved]
  - Ear swelling [Not Recovered/Not Resolved]
  - Neutrophil count decreased [Recovered/Resolved]
  - Lymphocyte count increased [Recovered/Resolved]
  - Neutrophil count decreased [Recovered/Resolved]
  - Lymphadenopathy [Not Recovered/Not Resolved]
  - Headache [Recovered/Resolved]
  - Monocyte count decreased [Recovering/Resolving]
  - Pain [Recovered/Resolved]
  - Thyroid function test abnormal [Unknown]
  - Drug intolerance [Unknown]
  - Deafness [Recovered/Resolved]
  - Platelet count decreased [Recovering/Resolving]
  - Influenza [Recovered/Resolved]
  - Malaise [Unknown]
  - Malaise [Not Recovered/Not Resolved]
  - Depression [Not Recovered/Not Resolved]
  - Illness [Recovered/Resolved]
  - Hyperthyroidism [Unknown]
  - Feeding disorder [Not Recovered/Not Resolved]
  - Gastric disorder [Unknown]
  - Migraine [Unknown]

NARRATIVE: CASE EVENT DATE: 2016
